FAERS Safety Report 11601452 (Version 1)
Quarter: 2015Q4

REPORT INFORMATION
  Report Type: Spontaneous
  Country: US (occurrence: US)
  Receive Date: 20151006
  Receipt Date: 20151006
  Transmission Date: 20160304
  Serious: No
  Sender: FDA-Public Use
  Company Number: US-AMGEN-USASP2015004835

PATIENT
  Age: 64 Year
  Sex: Female

DRUGS (5)
  1. MINIVELLE [Concomitant]
     Active Substance: ESTRADIOL
     Dosage: UNK
  2. PROLIA [Suspect]
     Active Substance: DENOSUMAB
     Indication: OSTEOPOROSIS POSTMENOPAUSAL
     Dosage: UNK
     Route: 065
     Dates: start: 20140904
  3. SOTALOL. [Concomitant]
     Active Substance: SOTALOL
     Indication: ATRIAL FIBRILLATION
     Dosage: UNK
  4. CALCIUM [Concomitant]
     Active Substance: CALCIUM
     Dosage: UNK
  5. VITAMIN D                          /00107901/ [Concomitant]
     Active Substance: ERGOCALCIFEROL
     Dosage: UNK

REACTIONS (12)
  - Papule [Unknown]
  - Pain in extremity [Unknown]
  - Nipple swelling [Unknown]
  - Dry skin [Unknown]
  - Hyperaesthesia [Unknown]
  - Erythema [Unknown]
  - Skin discolouration [Unknown]
  - Pruritus [Unknown]
  - Nipple disorder [Unknown]
  - Skin exfoliation [Unknown]
  - Breast discolouration [Unknown]
  - Nipple pain [Unknown]

NARRATIVE: CASE EVENT DATE: 201410
